FAERS Safety Report 14280415 (Version 1)
Quarter: 2017Q4

REPORT INFORMATION
  Report Type: Spontaneous
  Country: US (occurrence: None)
  Receive Date: 20171212
  Receipt Date: 20171212
  Transmission Date: 20180321
  Serious: Yes (Other)
  Sender: FDA-Public Use
  Company Number: None

PATIENT
  Age: 84 Year
  Sex: Female

DRUGS (1)
  1. CAPECITABINE 500MG TAB RISING [Suspect]
     Active Substance: CAPECITABINE
     Indication: BREAST CANCER
     Route: 048
     Dates: start: 20171113

REACTIONS (3)
  - Full blood count decreased [None]
  - Therapy change [None]
  - Dizziness [None]

NARRATIVE: CASE EVENT DATE: 20171115
